FAERS Safety Report 7274263-1 (Version None)
Quarter: 2010Q4

REPORT INFORMATION
  Report Type: 
  Country: None (occurrence: None)
  Receive Date: 20101206
  Receipt Date: 20100728
  Transmission Date: 20110411
  Serious: No
  Sender: FDA-Public Use
  Company Number: 2010SP041280

PATIENT
  Age: 48 Year
  Sex: Female

DRUGS (6)
  1. SAPHRIS [Suspect]
     Indication: SCHIZOAFFECTIVE DISORDER
     Dosage: 5 MG;BID;PO, 10 MG;HS;PO
     Route: 048
     Dates: start: 20100723, end: 20100726
  2. SAPHRIS [Suspect]
     Indication: SCHIZOAFFECTIVE DISORDER
     Dosage: 5 MG;BID;PO, 10 MG;HS;PO
     Route: 048
     Dates: start: 20100726
  3. LEXAPRO [Concomitant]
  4. LAMICTAL [Concomitant]
  5. DALMANE [Concomitant]
  6. COGENTIN [Concomitant]

REACTIONS (4)
  - ADVERSE EVENT [None]
  - EYE SWELLING [None]
  - INAPPROPRIATE SCHEDULE OF DRUG ADMINISTRATION [None]
  - INCORRECT ROUTE OF DRUG ADMINISTRATION [None]
